FAERS Safety Report 8622080-X (Version None)
Quarter: 2012Q3

REPORT INFORMATION
  Report Type: 
  Country: None (occurrence: None)
  Receive Date: 20120822
  Receipt Date: 20120822
  Transmission Date: 20120928
  Serious: Yes (Death)
  Sender: FDA-Public Use
  Company Number: None

PATIENT
  Sex: Male
  Weight: 133 kg

DRUGS (14)
  1. GABAPENTIN [Concomitant]
  2. PRAVASTATIN [Concomitant]
  3. ASPIRIN [Concomitant]
  4. FLUCONAZOLE [Concomitant]
  5. COUMADIN [Suspect]
     Indication: ATRIAL FIBRILLATION
     Dosage: 5MG, DAILY, PO
     Route: 048
     Dates: start: 20120412, end: 20120416
  6. FUOSEMIDE [Concomitant]
  7. MEROPENEM [Concomitant]
  8. DIGOXIN [Concomitant]
  9. INSULIN LISPRO [Concomitant]
  10. LOVENOX [Suspect]
     Indication: ATRIAL FIBRILLATION
     Dosage: 130MG, Q12H, SQ
     Dates: start: 20120405, end: 20120416
  11. METOPROLOL TARTRATE [Concomitant]
  12. MIRALAX [Concomitant]
  13. PREDNISONE [Concomitant]
  14. PANTOPRAZOLE [Concomitant]

REACTIONS (5)
  - HYPOXIA [None]
  - RETROPERITONEAL HAEMATOMA [None]
  - HYPOTENSION [None]
  - HAEMOGLOBIN DECREASED [None]
  - EPISTAXIS [None]
